FAERS Safety Report 10685262 (Version 2)
Quarter: 2015Q1

REPORT INFORMATION
  Report Type: Other
  Country: FR (occurrence: FR)
  Receive Date: 20141231
  Receipt Date: 20150114
  Transmission Date: 20150720
  Serious: Yes (Death, Hospitalization)
  Sender: FDA-Public Use
  Company Number: FR-ASTELLAS-2014US021354

PATIENT
  Age: 46 Year
  Sex: Female

DRUGS (10)
  1. ERLOTINIB [Suspect]
     Active Substance: ERLOTINIB
     Indication: BRONCHIAL CARCINOMA
     Dates: start: 20141029, end: 20141106
  2. CORDARONE [Suspect]
     Active Substance: AMIODARONE HYDROCHLORIDE
     Indication: ARRHYTHMIA
     Route: 042
     Dates: start: 20141026, end: 20141027
  3. FENTANYL. [Suspect]
     Active Substance: FENTANYL
     Indication: PRODUCT USED FOR UNKNOWN INDICATION
     Dosage: 500 ?G, EVERY HOUR
     Route: 042
     Dates: start: 20141024, end: 20141107
  4. PARACETAMOL [Suspect]
     Active Substance: ACETAMINOPHEN
     Indication: PRODUCT USED FOR UNKNOWN INDICATION
     Route: 042
     Dates: start: 20141024, end: 20141102
  5. CORDARONE [Suspect]
     Active Substance: AMIODARONE HYDROCHLORIDE
     Indication: ATRIAL FIBRILLATION
  6. PROPOFOL. [Concomitant]
     Active Substance: PROPOFOL
     Indication: SEPTIC SHOCK
     Dosage: UNK UNK, UNKNOWN FREQ.
     Route: 065
  7. PROPOFOL. [Concomitant]
     Active Substance: PROPOFOL
     Indication: LUNG DISORDER
  8. TIENAM [Suspect]
     Active Substance: CILASTATIN SODIUM\IMIPENEM
     Indication: PRODUCT USED FOR UNKNOWN INDICATION
     Route: 042
     Dates: start: 20141025, end: 20141104
  9. ACUPAN [Concomitant]
     Active Substance: NEFOPAM HYDROCHLORIDE
     Indication: PRODUCT USED FOR UNKNOWN INDICATION
     Dosage: UNK UNK, UNKNOWN FREQ.
     Route: 065
     Dates: start: 20141025
  10. HYPNOVEL                           /00634101/ [Suspect]
     Active Substance: MIDAZOLAM\MIDAZOLAM HYDROCHLORIDE
     Indication: PRODUCT USED FOR UNKNOWN INDICATION
     Dosage: 10 MG EVERY 1 HOUR
     Route: 042
     Dates: start: 20141024, end: 20141107

REACTIONS (2)
  - Hepatitis [Fatal]
  - Multi-organ failure [Fatal]

NARRATIVE: CASE EVENT DATE: 20141104
